FAERS Safety Report 7953742-5 (Version None)
Quarter: 2011Q4

REPORT INFORMATION
  Report Type: 
  Country: None (occurrence: None)
  Receive Date: 20111202
  Receipt Date: 20111125
  Transmission Date: 20120403
  Serious: Yes (Other)
  Sender: FDA-Public Use
  Company Number: BR-BAYER-2011-113948

PATIENT
  Age: 42 Year
  Sex: Female

DRUGS (1)
  1. INTERFERON BETA-1B [Suspect]
     Indication: MULTIPLE SCLEROSIS
     Dosage: 8 MIU, QOD
     Route: 058
     Dates: start: 20111112, end: 20111124

REACTIONS (9)
  - VOMITING [None]
  - PYREXIA [None]
  - TREMOR [None]
  - SYNCOPE [None]
  - SUBCUTANEOUS HAEMATOMA [None]
  - DIZZINESS [None]
  - ASTHENIA [None]
  - VISUAL IMPAIRMENT [None]
  - CHILLS [None]
